FAERS Safety Report 13693834 (Version 1)
Quarter: 2017Q2

REPORT INFORMATION
  Report Type: Spontaneous
  Country: GB (occurrence: GB)
  Receive Date: 20170627
  Receipt Date: 20170627
  Transmission Date: 20170830
  Serious: Yes (Hospitalization, Other)
  Sender: FDA-Public Use
  Company Number: GB-BAYER-2017-117925

PATIENT
  Age: 63 Year
  Sex: Male

DRUGS (1)
  1. NAPROXEN SODIUM ({= 220 MG) [Suspect]
     Active Substance: NAPROXEN SODIUM
     Indication: ANALGESIC THERAPY
     Dosage: 500 MG, BID
     Route: 048
     Dates: end: 20170604

REACTIONS (3)
  - Acute coronary syndrome [Recovered/Resolved with Sequelae]
  - Myocardial infarction [Unknown]
  - Chest pain [Unknown]

NARRATIVE: CASE EVENT DATE: 20170604
